FAERS Safety Report 15579694 (Version 1)
Quarter: 2018Q4

REPORT INFORMATION
  Report Type: Spontaneous
  Country: US (occurrence: US)
  Receive Date: 20181102
  Receipt Date: 20181102
  Transmission Date: 20190205
  Serious: Yes (Hospitalization, Other)
  Sender: FDA-Public Use
  Company Number: US-009507513-1107USA03265

PATIENT
  Sex: Female
  Weight: 66.63 kg

DRUGS (9)
  1. FOSAMAX [Suspect]
     Active Substance: ALENDRONATE SODIUM
     Indication: OSTEOPENIA
     Dosage: 70 MG, QW
     Route: 048
     Dates: start: 200502, end: 201012
  2. ALENDRONATE SODIUM. [Suspect]
     Active Substance: ALENDRONATE SODIUM
     Indication: OSTEOPENIA
     Dosage: 70 MG, UNK
     Route: 048
     Dates: start: 20081006
  3. MK-0152 [Concomitant]
     Active Substance: HYDROCHLOROTHIAZIDE
     Indication: PRODUCT USED FOR UNKNOWN INDICATION
     Dosage: 25 MG, QD
     Route: 048
  4. MONOPRIL [Concomitant]
     Active Substance: FOSINOPRIL SODIUM
     Indication: PRODUCT USED FOR UNKNOWN INDICATION
     Dosage: 60 MG, QD
     Route: 048
  5. ADALAT CC [Concomitant]
     Active Substance: NIFEDIPINE
     Indication: PRODUCT USED FOR UNKNOWN INDICATION
     Dosage: 30 MG, QD
     Route: 048
  6. HYDROCHLOROTHIAZIDE. [Concomitant]
     Active Substance: HYDROCHLOROTHIAZIDE
     Indication: PRODUCT USED FOR UNKNOWN INDICATION
     Route: 065
  7. LEVOTIROXINA S.O [Concomitant]
     Indication: PRODUCT USED FOR UNKNOWN INDICATION
     Dosage: 112 ?G, QD
     Route: 048
  8. SYNTHROID [Concomitant]
     Active Substance: LEVOTHYROXINE SODIUM
     Indication: PRODUCT USED FOR UNKNOWN INDICATION
     Dosage: 112 ?G, QD
     Route: 048
  9. ADALAT [Concomitant]
     Active Substance: NIFEDIPINE
     Indication: PRODUCT USED FOR UNKNOWN INDICATION
     Dosage: 20 MG, QD
     Route: 048

REACTIONS (51)
  - Mitral valve incompetence [Unknown]
  - Benign neoplasm of skin [Unknown]
  - Cataract cortical [Unknown]
  - Pyrexia [Unknown]
  - Dysuria [Unknown]
  - Haemorrhoids [Unknown]
  - Angiopathy [Unknown]
  - Femur fracture [Recovered/Resolved]
  - Basedow^s disease [Unknown]
  - Meniscus injury [Unknown]
  - Iron deficiency anaemia [Unknown]
  - Headache [Unknown]
  - Back pain [Unknown]
  - Osteoarthritis [Unknown]
  - Dry eye [Unknown]
  - Osteonecrosis [Unknown]
  - Nausea [Unknown]
  - Paraesthesia [Unknown]
  - Synovial cyst [Unknown]
  - Skin lesion [Unknown]
  - Impaired healing [Unknown]
  - Mucous stools [Unknown]
  - Varicose vein [Unknown]
  - Depression [Unknown]
  - Meniscus injury [Unknown]
  - Acute sinusitis [Unknown]
  - Polyneuropathy [Unknown]
  - Chondrocalcinosis [Unknown]
  - Migraine [Unknown]
  - Exostosis [Unknown]
  - Tendon rupture [Unknown]
  - Bone cyst [Unknown]
  - Pain in extremity [Unknown]
  - Vitreous detachment [Unknown]
  - Essential hypertension [Unknown]
  - Vertigo positional [Unknown]
  - Constipation [Unknown]
  - Gastrooesophageal reflux disease [Unknown]
  - Retinal drusen [Unknown]
  - Fall [Unknown]
  - Hyperthyroidism [Unknown]
  - Joint swelling [Unknown]
  - Catheter site pain [Unknown]
  - Hyperlipidaemia [Recovering/Resolving]
  - Onychomycosis [Unknown]
  - Menopausal symptoms [Unknown]
  - Vision blurred [Unknown]
  - Blood pressure decreased [Unknown]
  - Persistent depressive disorder [Unknown]
  - Gastroenteritis [Unknown]
  - Ligament sprain [Unknown]

NARRATIVE: CASE EVENT DATE: 20050520
